FAERS Safety Report 7981736 (Version 2)
Quarter: 2012Q4

REPORT INFORMATION
  Report Type: 
  Country: CA (occurrence: CA)
  Receive Date: 20110608
  Receipt Date: 20121109
  Transmission Date: 20130627
  Serious: Yes (Death)
  Sender: FDA-Public Use
  Company Number: PHMT2006CA02130

PATIENT
  Sex: Male

DRUGS (3)
  1. SANDOSTATIN LAR [Suspect]
     Indication: CARCINOID TUMOUR
     Dates: start: 20041027, end: 20050608
  2. SANDOSTATIN [Suspect]
     Dates: start: 20050620
  3. TYLENOL W/CODEINE NO. 3 [Concomitant]

REACTIONS (8)
  - Death [Fatal]
  - Flushing [Unknown]
  - Dry mouth [Unknown]
  - Hyperglycaemia [Unknown]
  - Hypoglycaemia [Unknown]
  - Diarrhoea [Unknown]
  - Constipation [Unknown]
  - Dizziness [Unknown]
